FAERS Safety Report 7327084-5 (Version None)
Quarter: 2011Q1

REPORT INFORMATION
  Report Type: 
  Country: None (occurrence: None)
  Receive Date: 20110222
  Receipt Date: 20110211
  Transmission Date: 20110831
  Serious: Yes (Hospitalization, Other)
  Sender: FDA-Public Use
  Company Number: 2010SP064419

PATIENT
  Age: 35 Year
  Sex: Female
  Weight: 95.2554 kg

DRUGS (1)
  1. NUVARING [Suspect]
     Indication: CONTRACEPTION
     Dates: start: 20081101, end: 20091201

REACTIONS (8)
  - MULTIPLE INJURIES [None]
  - EMOTIONAL DISTRESS [None]
  - ANXIETY [None]
  - OVARIAN CYST [None]
  - WEIGHT INCREASED [None]
  - PULMONARY EMBOLISM [None]
  - THANATOPHOBIA [None]
  - MIGRAINE [None]
